FAERS Safety Report 8043198-9 (Version None)
Quarter: 2012Q1

REPORT INFORMATION
  Report Type: 
  Country: None (occurrence: None)
  Receive Date: 20120112
  Receipt Date: 20120106
  Transmission Date: 20120608
  Serious: Yes (Hospitalization)
  Sender: FDA-Public Use
  Company Number: NL-MEDIMMUNE-MEDI-0013701

PATIENT
  Sex: Male
  Weight: 3.55 kg

DRUGS (4)
  1. BACTRIM [Concomitant]
     Dates: end: 20111007
  2. SYNAGIS [Suspect]
     Route: 030
     Dates: start: 20110907, end: 20110907
  3. REGULAR VACCINATIONS [Concomitant]
  4. SYNAGIS [Suspect]
     Route: 030
     Dates: start: 20111005, end: 20111005

REACTIONS (3)
  - BRONCHIAL HYPERREACTIVITY [None]
  - RESPIRATORY TRACT INFECTION VIRAL [None]
  - DYSPNOEA [None]
